FAERS Safety Report 7290487-1 (Version None)
Quarter: 2011Q1

REPORT INFORMATION
  Report Type: 
  Country: None (occurrence: None)
  Receive Date: 20110214
  Receipt Date: 20110210
  Transmission Date: 20110831
  Serious: Yes (Other)
  Sender: FDA-Public Use
  Company Number: IT-PFIZER INC-2011030090

PATIENT
  Age: 50 Year
  Sex: Male

DRUGS (2)
  1. SUTENT [Suspect]
     Indication: RENAL CELL CARCINOMA
     Dosage: UNK
     Dates: start: 20080101, end: 20100301
  2. ZOLEDRONIC ACID [Suspect]
     Indication: RENAL CELL CARCINOMA

REACTIONS (2)
  - OSTEONECROSIS OF JAW [None]
  - HYPOTHYROIDISM [None]
